FAERS Safety Report 8941024 (Version 1)
Quarter: 2012Q4

REPORT INFORMATION
  Report Type: 
  Country: US (occurrence: US)
  Receive Date: 20121203
  Receipt Date: 20121203
  Transmission Date: 20130627
  Serious: Yes (Life-Threatening, Hospitalization)
  Sender: FDA-Public Use
  Company Number: US-ROCHE-1162855

PATIENT
  Age: 36 Year
  Sex: Male

DRUGS (2)
  1. CELLCEPT [Suspect]
     Indication: VASCULITIS
     Route: 048
  2. PREDNISONE [Concomitant]
     Indication: VASCULITIS

REACTIONS (1)
  - Cholecystitis [Unknown]
